FAERS Safety Report 5586166-9 (Version None)
Quarter: 2008Q1

REPORT INFORMATION
  Report Type: 
  Country: None (occurrence: None)
  Receive Date: 20080104
  Receipt Date: 20071220
  Transmission Date: 20080703
  Serious: Yes (Other)
  Sender: FDA-Public Use
  Company Number: TNZFR200700128

PATIENT
  Age: 69 Year
  Sex: Female
  Weight: 67 kg

DRUGS (2)
  1. INNOHEP [Suspect]
     Indication: ATRIAL FIBRILLATION
     Dosage: (10000 IU, DAILY), SUBCUTANEOUS
     Route: 058
     Dates: start: 20071106, end: 20071106
  2. BISOPROLOL FUMARATE [Concomitant]

REACTIONS (4)
  - BLOOD CREATINE INCREASED [None]
  - MALAISE [None]
  - NAUSEA [None]
  - SYNCOPE [None]
